APPROVED DRUG PRODUCT: METOPROLOL SUCCINATE
Active Ingredient: METOPROLOL SUCCINATE
Strength: EQ 200MG TARTRATE
Dosage Form/Route: TABLET, EXTENDED RELEASE;ORAL
Application: A210597 | Product #002
Applicant: PRINSTON PHARMACEUTICAL INC
Approved: Jan 4, 2022 | RLD: No | RS: No | Type: DISCN